FAERS Safety Report 8321141-2 (Version None)
Quarter: 2012Q2

REPORT INFORMATION
  Report Type: 
  Country: None (occurrence: None)
  Receive Date: 20120430
  Receipt Date: 20120426
  Transmission Date: 20120825
  Serious: Yes (Hospitalization)
  Sender: FDA-Public Use
  Company Number: BE-BAYER-2011-087047

PATIENT
  Age: 61 Year
  Sex: Female

DRUGS (28)
  1. CONTRAST MEDIA [Concomitant]
     Indication: SCAN WITH CONTRAST
  2. DUOVENT [Concomitant]
     Indication: COUGH
     Dosage: UNK
     Dates: start: 20120121, end: 20120121
  3. OMEPRAZOLE [Concomitant]
     Indication: DIARRHOEA
     Dosage: 20 MG, QD
     Dates: start: 20110901, end: 20111207
  4. OMEPRAZOLE [Concomitant]
     Dosage: 40 MG, QD
     Dates: start: 20111208
  5. SOFRAMYCINE HYDROCORTISONE [Concomitant]
     Indication: COUGH
     Dosage: UNK
     Dates: start: 20120110
  6. ACETAMINOPHEN [Concomitant]
     Indication: HEADACHE
     Dosage: 1 G, PRN
     Dates: start: 20110901, end: 20110913
  7. MAGNECAPS [Concomitant]
     Indication: MUSCLE SPASMS
     Dosage: ONE TAB
     Dates: start: 20110906, end: 20110914
  8. SORAFENIB (RAF KINASE INHIBITOR) [Suspect]
     Indication: BREAST CANCER METASTATIC
     Dosage: 600 MG
     Route: 048
     Dates: start: 20110831, end: 20110913
  9. ALPRAZOLAM [Concomitant]
     Indication: PROPHYLAXIS
     Dosage: UNK
     Route: 048
     Dates: start: 20101019, end: 20111230
  10. CAPECITABINE [Suspect]
     Indication: BREAST CANCER METASTATIC
     Dosage: 400 MG
     Route: 048
     Dates: start: 20110831, end: 20110913
  11. CAPECITABINE [Suspect]
     Dosage: 300 MG
     Route: 048
     Dates: start: 20111012
  12. LEVOTUSS [Concomitant]
     Indication: COUGH
     Dosage: UNK
     Dates: start: 20111214, end: 20120116
  13. CODEINE [Concomitant]
     Indication: COUGH
     Dosage: UNK
     Dates: start: 20120117
  14. SORAFENIB (RAF KINASE INHIBITOR) [Suspect]
     Dosage: 600 MG
     Route: 048
     Dates: start: 20111005
  15. DEXAMETHASONE [Concomitant]
     Indication: ASTHENIA
     Dosage: 5 MG, QD
     Dates: start: 20111224, end: 20111225
  16. LOCABIOTAL [Concomitant]
     Indication: COUGH
     Dosage: UNK
     Dates: start: 20120121
  17. MEDROL [Concomitant]
     Indication: FATIGUE
     Dosage: DAILY DOSE 16 MG
     Dates: start: 20120104
  18. SPASMOMEN [Concomitant]
     Indication: ABDOMINAL PAIN
     Dosage: 40 MG, PRN
     Dates: start: 20111119, end: 20120103
  19. LORAZEPAM [Concomitant]
     Indication: PROPHYLAXIS
     Dosage: 1 MG, PRN
     Dates: start: 20110917, end: 20110917
  20. D-CURE [Concomitant]
     Indication: OSTEOPOROSIS PROPHYLAXIS
     Dosage: UNK
     Route: 048
     Dates: start: 20070101
  21. CELECTOL [Concomitant]
     Indication: HYPERTENSION
     Dosage: DAILY DOSE 200 MG
     Route: 048
     Dates: start: 19900101
  22. ENOXAPARIN SODIUM [Concomitant]
     Indication: THROMBOSIS PROPHYLAXIS
     Dosage: DAILY DOSE 40 MG
     Route: 058
     Dates: start: 20110815
  23. FELDENE [Concomitant]
     Indication: OSTEOARTHRITIS
     Dosage: DAILY DOSE 20 MG
     Dates: start: 20110818, end: 20110824
  24. CALCIUM CARBONATE [Concomitant]
     Indication: OSTEOPOROSIS PROPHYLAXIS
     Dosage: DAILY DOSE 1250 MG
     Route: 048
     Dates: start: 20070101
  25. DAFLON [DIOSMIN] [Concomitant]
     Indication: PROPHYLAXIS
     Dosage: UNK
     Dates: start: 20110917, end: 20110922
  26. DAFLON [DIOSMIN] [Concomitant]
     Indication: HAEMORRHOIDS
     Dosage: 500 MG, QD
     Dates: start: 20111208, end: 20120103
  27. SILVER SULFADIAZINE [Concomitant]
     Indication: PAIN OF SKIN
     Dosage: UNK
     Dates: start: 20110910, end: 20110916
  28. PULMICORT [Concomitant]
     Indication: COUGH
     Dosage: 100 UG
     Dates: start: 20111213, end: 20120116

REACTIONS (10)
  - DIARRHOEA [None]
  - DECREASED APPETITE [None]
  - DEHYDRATION [None]
  - PYREXIA [None]
  - FATIGUE [None]
  - NAUSEA [None]
  - COLITIS [None]
  - VOMITING [None]
  - ASTHENIA [None]
  - RECTAL HAEMORRHAGE [None]
